FAERS Safety Report 4480861-0 (Version None)
Quarter: 2004Q4

REPORT INFORMATION
  Report Type: 
  Country: None (occurrence: None)
  Receive Date: 20041020
  Receipt Date: 20041004
  Transmission Date: 20050328
  Serious: Yes (Other)
  Sender: FDA-Public Use
  Company Number: SUS1-2004-00632

PATIENT
  Age: 7 Year
  Sex: Female
  Weight: 20.4 kg

DRUGS (2)
  1. ADDERALL XR (AMPHETAMINE ASPARTATE, AMPHETAMINE SULFATE, DEXTROAMPHETA [Suspect]
     Indication: ATTENTION DEFICIT/HYPERACTIVITY DISORDER
     Dosage: 10 MG, 1X/DAY; QD,  ;   5 MG, 1X/DAY; QD,
     Dates: start: 20040101, end: 20040501
  2. ADDERALL XR (AMPHETAMINE ASPARTATE, AMPHETAMINE SULFATE, DEXTROAMPHETA [Suspect]
     Indication: ATTENTION DEFICIT/HYPERACTIVITY DISORDER
     Dosage: 10 MG, 1X/DAY; QD,  ;   5 MG, 1X/DAY; QD,
     Dates: start: 20040501, end: 20040901

REACTIONS (16)
  - ABNORMAL BEHAVIOUR [None]
  - ANOREXIA [None]
  - ANXIETY [None]
  - ATTENTION-SEEKING BEHAVIOUR [None]
  - CONSTIPATION [None]
  - DELUSION [None]
  - DRUG INEFFECTIVE [None]
  - DRUG WITHDRAWAL SYNDROME [None]
  - FEAR [None]
  - FEELING ABNORMAL [None]
  - HEART RATE INCREASED [None]
  - OVERDOSE [None]
  - PANIC REACTION [None]
  - PSYCHOTIC DISORDER [None]
  - THEFT [None]
  - URINARY INCONTINENCE [None]
